FAERS Safety Report 10509055 (Version 1)
Quarter: 2014Q4

REPORT INFORMATION
  Report Type: Spontaneous
  Country: DO (occurrence: DO)
  Receive Date: 20141009
  Receipt Date: 20141009
  Transmission Date: 20150528
  Serious: Yes (Hospitalization)
  Sender: FDA-Public Use
  Company Number: DO-ASTRAZENECA-2014SE73976

PATIENT
  Age: 80 Year
  Sex: Male

DRUGS (4)
  1. ASPIRIN. [Concomitant]
     Active Substance: ASPIRIN
     Indication: ACUTE MYOCARDIAL INFARCTION
     Route: 048
  2. RAMIPRIL. [Concomitant]
     Active Substance: RAMIPRIL
     Indication: HYPERTENSION
     Route: 048
  3. BRILINTA [Suspect]
     Active Substance: TICAGRELOR
     Indication: ACUTE MYOCARDIAL INFARCTION
     Route: 048
     Dates: start: 201408
  4. CARVEDILOL. [Concomitant]
     Active Substance: CARVEDILOL
     Route: 048

REACTIONS (2)
  - Pulmonary hypertension [Unknown]
  - Hydrocholecystis [Unknown]

NARRATIVE: CASE EVENT DATE: 20140924
